FAERS Safety Report 16211530 (Version 1)
Quarter: 2019Q2

REPORT INFORMATION
  Report Type: Spontaneous
  Country: JP (occurrence: JP)
  Receive Date: 20190418
  Receipt Date: 20190418
  Transmission Date: 20190711
  Serious: Yes (Death)
  Sender: FDA-Public Use
  Company Number: JP-CLINIGEN GROUP PLC/ CLINIGEN HEALTHCARE LTD-JP-CLGN-19-00272

PATIENT
  Age: 60 Year
  Sex: Female

DRUGS (3)
  1. FOSCAVIR [Suspect]
     Active Substance: FOSCARNET SODIUM
     Indication: RHEUMATIC DISORDER
  2. FOSCAVIR [Suspect]
     Active Substance: FOSCARNET SODIUM
     Indication: CYTOMEGALOVIRUS INFECTION
     Route: 042
     Dates: start: 20190408
  3. FOSCAVIR [Suspect]
     Active Substance: FOSCARNET SODIUM
     Indication: IMMUNODEFICIENCY

REACTIONS (2)
  - Off label use [Unknown]
  - Disease progression [Fatal]
